FAERS Safety Report 7241128-0 (Version None)
Quarter: 2011Q1

REPORT INFORMATION
  Report Type: 
  Country: None (occurrence: None)
  Receive Date: 20110124
  Receipt Date: 20101222
  Transmission Date: 20110831
  Serious: Yes (Other)
  Sender: FDA-Public Use
  Company Number: A0888901A

PATIENT
  Age: 56 Year
  Sex: Female

DRUGS (1)
  1. ALLI [Suspect]
     Indication: WEIGHT LOSS DIET
     Route: 048
     Dates: end: 20101020

REACTIONS (8)
  - HYPERSENSITIVITY [None]
  - PRURITUS [None]
  - PRURITUS GENERALISED [None]
  - THERAPEUTIC RESPONSE UNEXPECTED [None]
  - TREMOR [None]
  - CHOLECYSTECTOMY [None]
  - CONVULSION [None]
  - URTICARIA [None]
